FAERS Safety Report 19546346 (Version 1)
Quarter: 2021Q3

REPORT INFORMATION
  Report Type: Spontaneous
  Country: US (occurrence: US)
  Receive Date: 20210713
  Receipt Date: 20210713
  Transmission Date: 20211014
  Serious: No
  Sender: FDA-Public Use
  Company Number: US-ASTRAZENECA-2021A564899

PATIENT
  Sex: Male
  Weight: 85.7 kg

DRUGS (1)
  1. FARXIGA [Suspect]
     Active Substance: DAPAGLIFLOZIN PROPANEDIOL
     Indication: TYPE 2 DIABETES MELLITUS
     Dosage: 5.0MG UNKNOWN
     Route: 048
     Dates: end: 2018

REACTIONS (8)
  - Pruritus [Recovered/Resolved]
  - Exostosis [Unknown]
  - Tendon disorder [Unknown]
  - Adverse drug reaction [Unknown]
  - Skin exfoliation [Recovered/Resolved]
  - Skin discolouration [Unknown]
  - Sensory loss [Unknown]
  - Infection [Recovered/Resolved]
